FAERS Safety Report 9164582 (Version 1)
Quarter: 2013Q1

REPORT INFORMATION
  Report Type: Report from Study
  Country: DE (occurrence: DE)
  Receive Date: 20130315
  Receipt Date: 20130315
  Transmission Date: 20140127
  Serious: Yes (Hospitalization)
  Sender: FDA-Public Use
  Company Number: DE-009507513-1303USA004076

PATIENT
  Age: 67 Year
  Sex: Female
  Weight: 58 kg

DRUGS (5)
  1. BOCEPREVIR [Suspect]
     Indication: CHRONIC HEPATITIS C
     Dosage: 2400 MG, TID
     Route: 048
  2. RIBAVIRIN [Suspect]
     Indication: CHRONIC HEPATITIS C
     Dosage: 1000 MG, BID
     Route: 048
     Dates: start: 20111119
  3. PEGINTERFERON ALFA-2A [Suspect]
     Indication: CHRONIC HEPATITIS C
     Dosage: 180 MICROGRAM, QW
     Route: 058
     Dates: start: 20111119
  4. MICARDIS [Concomitant]
     Indication: HYPERTENSION
     Dosage: 40 MG, QD
     Route: 048
  5. CARBIMAZOLE [Concomitant]
     Indication: HYPERTHYROIDISM
     Dosage: 5 MG, QD
     Route: 048

REACTIONS (1)
  - Gastrointestinal disorder [Not Recovered/Not Resolved]
